FAERS Safety Report 9603900 (Version 1)
Quarter: 2013Q4

REPORT INFORMATION
  Report Type: Spontaneous
  Country: BR (occurrence: BR)
  Receive Date: 20131008
  Receipt Date: 20131008
  Transmission Date: 20140711
  Serious: Yes (Other)
  Sender: FDA-Public Use
  Company Number: BR-JNJFOC-20131002543

PATIENT
  Age: 52 Year
  Sex: Female
  Weight: 80 kg

DRUGS (3)
  1. IMOSEC [Suspect]
     Route: 048
  2. IMOSEC [Suspect]
     Indication: DIARRHOEA
     Route: 048
     Dates: start: 20131001, end: 20131001
  3. SACCHAROMYCES BOULARDII [Concomitant]
     Route: 065

REACTIONS (3)
  - Urinary tract infection [Unknown]
  - Urine output decreased [Unknown]
  - Dysuria [Unknown]
